FAERS Safety Report 23925123 (Version 2)
Quarter: 2024Q2

REPORT INFORMATION
  Report Type: Spontaneous
  Country: US (occurrence: US)
  Receive Date: 20240531
  Receipt Date: 20240625
  Transmission Date: 20240715
  Serious: No
  Sender: FDA-Public Use
  Company Number: US-SANOFI-02067021

PATIENT
  Sex: Female

DRUGS (1)
  1. LANTUS SOLOSTAR [Suspect]
     Active Substance: INSULIN GLARGINE
     Indication: Diabetes mellitus
     Dosage: 40 IU, QD
     Route: 058

REACTIONS (7)
  - Blood glucose increased [Unknown]
  - Device issue [Unknown]
  - Hyperhidrosis [Unknown]
  - Malaise [Unknown]
  - Vision blurred [Unknown]
  - Blood glucose fluctuation [Unknown]
  - Pain [Unknown]
